FAERS Safety Report 8371491-9 (Version None)
Quarter: 2012Q2

REPORT INFORMATION
  Report Type: 
  Country: None (occurrence: None)
  Receive Date: 20120517
  Receipt Date: 20120504
  Transmission Date: 20120825
  Serious: Yes (Other)
  Sender: FDA-Public Use
  Company Number: 2012P1021444

PATIENT
  Age: 27 Year
  Sex: Female

DRUGS (6)
  1. AMINO ACID SUPPLEMENTATION [Concomitant]
  2. LMW HEPARIN [Concomitant]
  3. CITRULLINE [Concomitant]
  4. AMMONUL [Suspect]
  5. B6 [Concomitant]
  6. B9 [Concomitant]

REACTIONS (3)
  - ABORTION INDUCED [None]
  - ORNITHINE TRANSCARBAMOYLASE DEFICIENCY [None]
  - MATERNAL EXPOSURE DURING PREGNANCY [None]
